FAERS Safety Report 14810079 (Version 1)
Quarter: 2018Q2

REPORT INFORMATION
  Report Type: Report from Study
  Country: US (occurrence: US)
  Receive Date: 20180425
  Receipt Date: 20180425
  Transmission Date: 20180711
  Serious: No
  Sender: FDA-Public Use
  Company Number: US-AMGEN-USASL2018025656

PATIENT
  Age: 82 Year
  Sex: Male

DRUGS (1)
  1. REPATHA [Suspect]
     Active Substance: EVOLOCUMAB
     Indication: TYPE IIA HYPERLIPIDAEMIA
     Dosage: UNK, Q2WK
     Route: 065

REACTIONS (10)
  - Haemoglobin decreased [Unknown]
  - Implant site swelling [Not Recovered/Not Resolved]
  - Blood testosterone decreased [Unknown]
  - Mean cell haemoglobin concentration decreased [Unknown]
  - Implant site pain [Not Recovered/Not Resolved]
  - Mean cell volume decreased [Unknown]
  - Laboratory test abnormal [Unknown]
  - Mean cell haemoglobin decreased [Unknown]
  - Glomerular filtration rate decreased [Unknown]
  - Faeces discoloured [Recovering/Resolving]

NARRATIVE: CASE EVENT DATE: 2018
